FAERS Safety Report 6413197-9 (Version None)
Quarter: 2009Q4

REPORT INFORMATION
  Report Type: 
  Country: None (occurrence: None)
  Receive Date: 20091026
  Receipt Date: 20091013
  Transmission Date: 20100525
  Serious: Yes (Hospitalization, Other)
  Sender: FDA-Public Use
  Company Number: PHHY2009JP18662

PATIENT
  Sex: Male
  Weight: 25 kg

DRUGS (8)
  1. NEORAL [Suspect]
     Indication: FOCAL SEGMENTAL GLOMERULOSCLEROSIS
     Dosage: UNK
     Route: 048
     Dates: start: 20051128, end: 20071212
  2. NEORAL [Suspect]
     Dosage: 60 MG, BID
     Route: 048
     Dates: start: 20080305, end: 20080429
  3. SOL-MELCORT [Suspect]
     Indication: FOCAL SEGMENTAL GLOMERULOSCLEROSIS
     Dosage: 625 MG, QD
     Route: 042
     Dates: start: 20080417, end: 20080419
  4. BREDININ [Concomitant]
     Indication: FOCAL SEGMENTAL GLOMERULOSCLEROSIS
     Dosage: 50 MG, UNK
     Route: 048
     Dates: start: 20051228
  5. BREDININ [Concomitant]
     Dosage: 150 MG, UNK
     Route: 048
  6. MIZORIBINE [Concomitant]
     Indication: FOCAL SEGMENTAL GLOMERULOSCLEROSIS
  7. PREDONINE [Concomitant]
     Dosage: 20 MG/DAY
  8. MIDAZOLAM HYDROCHLORIDE [Concomitant]

REACTIONS (11)
  - ALTERED STATE OF CONSCIOUSNESS [None]
  - CONVULSION [None]
  - COUGH [None]
  - GENERALISED OEDEMA [None]
  - HYPERTENSION [None]
  - NEPHRITIC SYNDROME [None]
  - NEPHROPATHY TOXIC [None]
  - PROTEIN URINE PRESENT [None]
  - REVERSIBLE POSTERIOR LEUKOENCEPHALOPATHY SYNDROME [None]
  - VASOGENIC CEREBRAL OEDEMA [None]
  - VISUAL IMPAIRMENT [None]
